FAERS Safety Report 11210880 (Version 3)
Quarter: 2015Q3

REPORT INFORMATION
  Report Type: Report from Study
  Country: BR (occurrence: BR)
  Receive Date: 20150622
  Receipt Date: 20150810
  Transmission Date: 20151125
  Serious: Yes (Death, Life-Threatening, Hospitalization, Other)
  Sender: FDA-Public Use
  Company Number: PHHY2015BR073426

PATIENT
  Sex: Male
  Weight: 47 kg

DRUGS (2)
  1. ONBREZ BREEZHALER [Suspect]
     Active Substance: INDACATEROL
     Indication: PRODUCT USED FOR UNKNOWN INDICATION
     Dosage: 150 UG, Q12H
     Route: 065
     Dates: start: 201504
  2. FORASEQ [Suspect]
     Active Substance: BUDESONIDE\FORMOTEROL FUMARATE
     Indication: PRODUCT USED FOR UNKNOWN INDICATION
     Dosage: 1 DF, Q12H
     Route: 065
     Dates: start: 201504

REACTIONS (6)
  - Lung neoplasm malignant [Fatal]
  - Blepharospasm [Unknown]
  - Condition aggravated [Unknown]
  - Drug ineffective [Unknown]
  - Throat tightness [Fatal]
  - Dyspnoea [Fatal]
